FAERS Safety Report 7744338-9 (Version None)
Quarter: 2011Q3

REPORT INFORMATION
  Report Type: 
  Country: None (occurrence: None)
  Receive Date: 20110825
  Receipt Date: 20110819
  Transmission Date: 20111222
  Serious: Yes (Hospitalization)
  Sender: FDA-Public Use
  Company Number: 2011SP037914

PATIENT
  Age: 86 Year
  Sex: Female

DRUGS (8)
  1. SOTALOL HCL [Concomitant]
  2. ASPIRIN [Concomitant]
  3. RAMIPRIL [Concomitant]
  4. MIRTAZAPINE [Suspect]
     Dosage: 15 MG;QD;PO
     Route: 048
     Dates: start: 20110525, end: 20110721
  5. PROTELOS [Concomitant]
  6. ACETAMINOPHEN [Concomitant]
  7. LAMICTAL [Concomitant]
  8. TRAMADOL HCL [Suspect]
     Dosage: 100 MG;BID;PO
     Route: 048
     Dates: start: 20110609, end: 20110721

REACTIONS (16)
  - BLOOD PRESSURE SYSTOLIC INCREASED [None]
  - MOTOR DYSFUNCTION [None]
  - COGWHEEL RIGIDITY [None]
  - BREATH SOUNDS ABNORMAL [None]
  - RALES [None]
  - CONSTIPATION [None]
  - ABDOMINAL PAIN UPPER [None]
  - DRUG INTERACTION [None]
  - PARTIAL SEIZURES WITH SECONDARY GENERALISATION [None]
  - RESPIRATORY DISORDER [None]
  - OEDEMA PERIPHERAL [None]
  - DISORIENTATION [None]
  - SYSTEMIC INFLAMMATORY RESPONSE SYNDROME [None]
  - MYALGIA [None]
  - MUSCULOSKELETAL PAIN [None]
  - ELECTROENCEPHALOGRAM ABNORMAL [None]
